FAERS Safety Report 7258539-X (Version None)
Quarter: 2011Q1

REPORT INFORMATION
  Report Type: 
  Country: None (occurrence: None)
  Receive Date: 20110129
  Receipt Date: 20100506
  Transmission Date: 20110831
  Serious: No
  Sender: FDA-Public Use
  Company Number: US-ABBOTT-10P-163-0642870-00

PATIENT
  Sex: Male
  Weight: 44.038 kg

DRUGS (1)
  1. HUMIRA [Suspect]
     Indication: JUVENILE ARTHRITIS
     Dates: start: 20100419

REACTIONS (2)
  - OROPHARYNGEAL PAIN [None]
  - HEADACHE [None]
